FAERS Safety Report 25768713 (Version 2)
Quarter: 2025Q4

REPORT INFORMATION
  Report Type: Spontaneous
  Country: US (occurrence: US)
  Receive Date: 20250905
  Receipt Date: 20251118
  Transmission Date: 20260117
  Serious: Yes (Death, Other)
  Sender: PFIZER
  Company Number: US-PFIZER INC-202500175340

PATIENT
  Age: 65 Year
  Sex: Male

DRUGS (2)
  1. INLYTA [Suspect]
     Active Substance: AXITINIB
     Dosage: 1MG TAKE 2 TABLETS TWICE DAILY
     Route: 048
  2. INLYTA [Suspect]
     Active Substance: AXITINIB
     Dosage: UNK

REACTIONS (2)
  - Death [Fatal]
  - Dialysis [Not Recovered/Not Resolved]
